FAERS Safety Report 24756100 (Version 2)
Quarter: 2025Q1

REPORT INFORMATION
  Report Type: Report from Study
  Country: US (occurrence: US)
  Receive Date: 20241219
  Receipt Date: 20250114
  Transmission Date: 20250409
  Serious: Yes (Other)
  Sender: ALEXION PHARMACEUTICALS
  Company Number: US-AstraZeneca-CH-00770254A

PATIENT

DRUGS (1)
  1. STRENSIQ [Suspect]
     Active Substance: ASFOTASE ALFA
     Indication: Hypophosphatasia
     Route: 065

REACTIONS (8)
  - Haemorrhagic ovarian cyst [Unknown]
  - Uterine haemorrhage [Unknown]
  - Kidney enlargement [Unknown]
  - Flank pain [Unknown]
  - Abdominal pain [Unknown]
  - Back pain [Unknown]
  - Pelvic pain [Unknown]
  - Nausea [Not Recovered/Not Resolved]
